FAERS Safety Report 23994522 (Version 1)
Quarter: 2024Q2

REPORT INFORMATION
  Report Type: Spontaneous
  Country: US (occurrence: US)
  Receive Date: 20240620
  Receipt Date: 20240620
  Transmission Date: 20240715
  Serious: No
  Sender: FDA-Public Use
  Company Number: US-MYLANLABS-2024M1053387

PATIENT
  Age: 56 Year
  Sex: Male

DRUGS (1)
  1. BREYNA [Suspect]
     Active Substance: BUDESONIDE\FORMOTEROL FUMARATE
     Indication: Product used for unknown indication
     Dosage: UNK MICROGRAM
     Route: 055

REACTIONS (5)
  - Dyspnoea exertional [Unknown]
  - Condition aggravated [Unknown]
  - Therapeutic response changed [Unknown]
  - Product substitution issue [Unknown]
  - Product quality issue [Unknown]
